FAERS Safety Report 14322413 (Version 6)
Quarter: 2019Q3

REPORT INFORMATION
  Report Type: Report from Study
  Country: US (occurrence: US)
  Receive Date: 20171225
  Receipt Date: 20190904
  Transmission Date: 20191004
  Serious: Yes (Other)
  Sender: FDA-Public Use
  Company Number: US-ASTELLAS-2017US055029

PATIENT
  Sex: Male

DRUGS (1)
  1. ENZALUTAMIDE [Suspect]
     Active Substance: ENZALUTAMIDE
     Indication: HORMONE-REFRACTORY PROSTATE CANCER
     Route: 048
     Dates: start: 20171110

REACTIONS (7)
  - Eyelid ptosis [Unknown]
  - Drug ineffective [Unknown]
  - Vision blurred [Recovered/Resolved]
  - Back pain [Unknown]
  - Dry eye [Unknown]
  - Confusional state [Unknown]
  - Visual impairment [Recovered/Resolved]
